FAERS Safety Report 21156590 (Version 1)
Quarter: 2022Q3

REPORT INFORMATION
  Report Type: Report from Study
  Country: KE (occurrence: KE)
  Receive Date: 20220801
  Receipt Date: 20220801
  Transmission Date: 20221026
  Serious: Yes (Other)
  Sender: FDA-Public Use
  Company Number: KE-NOVARTISPH-NVSC2022KE172409

PATIENT
  Sex: Female

DRUGS (1)
  1. ARTEMETHER\LUMEFANTRINE [Suspect]
     Active Substance: ARTEMETHER\LUMEFANTRINE
     Indication: Product used for unknown indication
     Dosage: 4 DOSAGE FORM, BID (DAY 1- 4 TABS SINGLE DOSE, 4 TABS AFTER 8HRS, DAY 3 ? 4 SINGLE DOSE 4 TABS)
     Route: 048

REACTIONS (4)
  - Malaria [Unknown]
  - Vomiting [Recovered/Resolved with Sequelae]
  - Product taste abnormal [Recovered/Resolved with Sequelae]
  - Product odour abnormal [Recovered/Resolved with Sequelae]
